FAERS Safety Report 15317760 (Version 4)
Quarter: 2019Q1

REPORT INFORMATION
  Report Type: Spontaneous
  Country: BR (occurrence: BR)
  Receive Date: 20180824
  Receipt Date: 20190320
  Transmission Date: 20190417
  Serious: Yes (Other)
  Sender: FDA-Public Use
  Company Number: BR-BIOMARINAP-BR-2018-119582

PATIENT
  Age: 47 Year
  Sex: Female
  Weight: 45 kg

DRUGS (4)
  1. ALDURAZYME [Suspect]
     Active Substance: LARONIDASE
     Dosage: 20 DOSAGE FORM, QOW
     Route: 041
     Dates: start: 20091020
  2. ALDURAZYME [Suspect]
     Active Substance: LARONIDASE
     Indication: MUCOPOLYSACCHARIDOSIS
     Dosage: 20 DOSAGE FORM, QOW
     Route: 041
     Dates: start: 20161010
  3. ALDURAZYME [Suspect]
     Active Substance: LARONIDASE
     Dosage: UNK
     Route: 041
     Dates: start: 20161020
  4. MAREVAN [Concomitant]
     Active Substance: WARFARIN SODIUM
     Indication: PRODUCT USED FOR UNKNOWN INDICATION

REACTIONS (13)
  - Abdominal pain [Recovering/Resolving]
  - Malaise [Recovering/Resolving]
  - Haematemesis [Recovered/Resolved]
  - Depression [Unknown]
  - Discomfort [Unknown]
  - Dizziness [Recovering/Resolving]
  - Renal disorder [Recovered/Resolved]
  - Glaucoma [Unknown]
  - Influenza [Recovering/Resolving]
  - Asthenia [Recovering/Resolving]
  - Renal pain [Recovering/Resolving]
  - Pruritus generalised [Recovering/Resolving]
  - Eating disorder [Recovering/Resolving]

NARRATIVE: CASE EVENT DATE: 20180724
